FAERS Safety Report 25040894 (Version 6)
Quarter: 2025Q4

REPORT INFORMATION
  Report Type: Spontaneous
  Country: CA (occurrence: CA)
  Receive Date: 20250305
  Receipt Date: 20251118
  Transmission Date: 20260117
  Serious: Yes (Hospitalization, Other)
  Sender: CELLTRION
  Company Number: CA-PFIZER INC-202500043320

PATIENT

DRUGS (6)
  1. INFLECTRA [Suspect]
     Active Substance: INFLIXIMAB-DYYB
     Indication: Ankylosing spondylitis
     Dosage: 600 MG, EVERY 4 WEEK
     Route: 042
     Dates: start: 20240111
  2. INFLECTRA [Suspect]
     Active Substance: INFLIXIMAB-DYYB
     Dosage: 600 MG, EVERY 4 WEEK
     Route: 042
     Dates: start: 20250109
  3. INFLECTRA [Suspect]
     Active Substance: INFLIXIMAB-DYYB
     Dosage: 600 MG, EVERY 4 WEEK
     Route: 042
     Dates: start: 20250416
  4. NAPROXEN [Concomitant]
     Active Substance: NAPROXEN
     Dosage: 1 DF
  5. OMEPRAZOLE [Concomitant]
     Active Substance: OMEPRAZOLE
     Dosage: 1 DF
  6. PREDNISONE [Concomitant]
     Active Substance: PREDNISONE
     Dosage: 1 DF

REACTIONS (8)
  - Nephrolithiasis [Unknown]
  - Kidney infection [Unknown]
  - Ureteric stenosis [Unknown]
  - Photosensitivity reaction [Unknown]
  - Dyspepsia [Unknown]
  - Abdominal pain upper [Unknown]
  - Vomiting [Unknown]
  - Condition aggravated [Unknown]

NARRATIVE: CASE EVENT DATE: 20250101
